FAERS Safety Report 19031169 (Version 1)
Quarter: 2021Q1

REPORT INFORMATION
  Report Type: Spontaneous
  Country: US (occurrence: US)
  Receive Date: 20210319
  Receipt Date: 20210319
  Transmission Date: 20210420
  Serious: Yes (Other)
  Sender: FDA-Public Use
  Company Number: US-SUN PHARMACEUTICAL INDUSTRIES LTD-2021R1-286728

PATIENT
  Age: 7 Year
  Sex: Male

DRUGS (6)
  1. DEXAMETHASONE. [Suspect]
     Active Substance: DEXAMETHASONE
     Indication: PAIN
  2. CARBOPLATIN. [Suspect]
     Active Substance: CARBOPLATIN
     Indication: CHEMOTHERAPY
     Dosage: UNK
     Route: 065
  3. DEXAMETHASONE. [Suspect]
     Active Substance: DEXAMETHASONE
     Indication: NAUSEA
     Dosage: HIGH DOSE
     Route: 065
  4. RITUXIMAB. [Suspect]
     Active Substance: RITUXIMAB
     Indication: CHEMOTHERAPY
     Dosage: UNK
     Route: 065
  5. ETOPOSIDE. [Suspect]
     Active Substance: ETOPOSIDE
     Indication: CHEMOTHERAPY
     Dosage: UNK
     Route: 065
  6. IFOSFAMIDE. [Suspect]
     Active Substance: IFOSFAMIDE
     Indication: CHEMOTHERAPY
     Dosage: UNK
     Route: 065

REACTIONS (2)
  - Disease progression [Unknown]
  - Therapy partial responder [Unknown]
